FAERS Safety Report 9523510 (Version 2)
Quarter: 2013Q3

REPORT INFORMATION
  Report Type: Spontaneous
  Country: AU (occurrence: AU)
  Receive Date: 20130913
  Receipt Date: 20130913
  Transmission Date: 20140515
  Serious: Yes (Other)
  Sender: FDA-Public Use
  Company Number: AU-ASTRAZENECA-2013SE28761

PATIENT
  Age: 19774 Day
  Sex: Female

DRUGS (3)
  1. NEXIUM HP7 [Suspect]
     Indication: HELICOBACTER INFECTION
     Dosage: TWICE A DAY
     Route: 048
     Dates: start: 20130405, end: 20130412
  2. AMOXICILLIN [Suspect]
     Indication: HELICOBACTER INFECTION
     Route: 065
  3. CLARITHROMYCIN [Suspect]
     Indication: HELICOBACTER INFECTION
     Route: 065

REACTIONS (8)
  - Influenza like illness [Unknown]
  - Dysuria [Unknown]
  - Hyperaesthesia [Unknown]
  - Muscle tightness [Unknown]
  - Abasia [Unknown]
  - Myalgia [Unknown]
  - Headache [Unknown]
  - Constipation [Unknown]
